FAERS Safety Report 11512519 (Version 1)
Quarter: 2015Q3

REPORT INFORMATION
  Report Type: Spontaneous
  Country: US (occurrence: None)
  Receive Date: 20150915
  Receipt Date: 20150915
  Transmission Date: 20151125
  Serious: Yes (Other)
  Sender: FDA-Public Use
  Company Number: None

PATIENT
  Age: 58 Year
  Sex: Female
  Weight: 58.97 kg

DRUGS (6)
  1. LEVOFLOXACIN (GENERIC FOR LEVAQUIN) ZYDUS [Suspect]
     Active Substance: LEVOFLOXACIN
     Indication: DIVERTICULITIS
     Route: 048
     Dates: start: 20150819, end: 20150821
  2. PROBIOTIC [Suspect]
     Active Substance: PROBIOTICS NOS
  3. TIMOLOL MALEATE. [Concomitant]
     Active Substance: TIMOLOL MALEATE
  4. VITAMIN [Concomitant]
     Active Substance: VITAMINS
  5. METRONIDAZOLE (GENERIC FOR METRONIDAZOLE) [Suspect]
     Active Substance: METRONIDAZOLE
     Indication: DIVERTICULITIS
     Route: 048
     Dates: start: 20150819, end: 20150821
  6. LATINOPRO [Concomitant]

REACTIONS (4)
  - Candida infection [None]
  - Musculoskeletal stiffness [None]
  - Myalgia [None]
  - Gait disturbance [None]

NARRATIVE: CASE EVENT DATE: 20150820
